FAERS Safety Report 23931458 (Version 1)
Quarter: 2024Q2

REPORT INFORMATION
  Report Type: Other
  Country: GB (occurrence: None)
  Receive Date: 20240603
  Receipt Date: 20240603
  Transmission Date: 20240715
  Serious: Yes (Hospitalization)
  Sender: FDA-Public Use
  Company Number: GB-ROCHE-3466024

PATIENT
  Age: 43 Year
  Sex: Female

DRUGS (1)
  1. OCREVUS [Suspect]
     Active Substance: OCRELIZUMAB
     Indication: Relapsing-remitting multiple sclerosis
     Route: 065

REACTIONS (6)
  - Urinary tract infection [Not Recovered/Not Resolved]
  - Protein urine present [Recovered/Resolved]
  - White blood cells urine positive [Recovered/Resolved]
  - Urosepsis [Recovered/Resolved]
  - Escherichia urinary tract infection [Unknown]
  - Streptococcal urinary tract infection [Recovered/Resolved]

NARRATIVE: CASE EVENT DATE: 20231127
